FAERS Safety Report 4278366-5 (Version None)
Quarter: 2004Q1

REPORT INFORMATION
  Report Type: 
  Country: None (occurrence: None)
  Receive Date: 20040123
  Receipt Date: 20040114
  Transmission Date: 20041129
  Serious: Yes (Other)
  Sender: FDA-Public Use
  Company Number: CH-ROCHE-356194

PATIENT
  Age: 58 Year
  Sex: Female

DRUGS (5)
  1. VALCYTE [Suspect]
     Indication: CYTOMEGALOVIRUS INFECTION
     Route: 048
     Dates: start: 20031115
  2. CELLCEPT [Suspect]
     Indication: RENAL TRANSPLANT
     Route: 048
     Dates: start: 20030815
  3. CYMEVENE [Concomitant]
     Indication: CYTOMEGALOVIRUS INFECTION
     Route: 042
     Dates: start: 20031015, end: 20031015
  4. PREDNISOLONE [Concomitant]
  5. NEORAL [Concomitant]

REACTIONS (2)
  - BLOOD CALCIUM DECREASED [None]
  - SPINAL DISORDER [None]
